FAERS Safety Report 11649712 (Version 1)
Quarter: 2015Q4

REPORT INFORMATION
  Report Type: Spontaneous
  Country: FR (occurrence: FR)
  Receive Date: 20151021
  Receipt Date: 20151021
  Transmission Date: 20160304
  Serious: Yes (Other)
  Sender: FDA-Public Use
  Company Number: FR-PFIZER INC-2015346812

PATIENT
  Sex: Male

DRUGS (1)
  1. FRAGMINE [Suspect]
     Active Substance: DALTEPARIN SODIUM

REACTIONS (1)
  - Thrombocytosis [Unknown]
